FAERS Safety Report 17486150 (Version 2)
Quarter: 2020Q2

REPORT INFORMATION
  Report Type: Report from Study
  Country: US (occurrence: US)
  Receive Date: 20200303
  Receipt Date: 20200401
  Transmission Date: 20200713
  Serious: Yes (Other)
  Sender: FDA-Public Use
  Company Number: US-ROCHE-2558356

PATIENT
  Sex: Female

DRUGS (11)
  1. CALCIUM [Concomitant]
     Active Substance: CALCIUM
  2. TROPICAMIDE. [Concomitant]
     Active Substance: TROPICAMIDE
     Dosage: DROP
     Route: 065
  3. AVASTIN [Suspect]
     Active Substance: BEVACIZUMAB
     Indication: VITREOUS HAEMORRHAGE
  4. LANTUS [Concomitant]
     Active Substance: INSULIN GLARGINE
  5. DICLOFENAC [Concomitant]
     Active Substance: DICLOFENAC
  6. PROPARACAINE [PROXYMETACAINE] [Concomitant]
  7. PHENYLEPHRINE [Concomitant]
     Active Substance: PHENYLEPHRINE HYDROCHLORIDE
     Dosage: DROP
     Route: 065
  8. AVASTIN [Suspect]
     Active Substance: BEVACIZUMAB
     Indication: DIABETIC RETINOPATHY
     Dosage: 1.25 MG/ 0.05 ML
     Route: 050
  9. HUMALOG [Concomitant]
     Active Substance: INSULIN LISPRO
  10. VITAMIN D3 [Concomitant]
     Active Substance: CHOLECALCIFEROL
  11. FISH OIL [Concomitant]
     Active Substance: FISH OIL

REACTIONS (3)
  - Eye haemorrhage [Unknown]
  - Off label use [Unknown]
  - Intentional product use issue [Unknown]
